FAERS Safety Report 9720447 (Version 1)
Quarter: 2013Q4

REPORT INFORMATION
  Report Type: Report from Study
  Country: CA (occurrence: CA)
  Receive Date: 20131129
  Receipt Date: 20131129
  Transmission Date: 20140711
  Serious: Yes (Other)
  Sender: FDA-Public Use
  Company Number: CA-JNJFOC-20131114367

PATIENT
  Age: 33 Year
  Sex: Male
  Weight: 79 kg

DRUGS (3)
  1. REMICADE [Suspect]
     Indication: ANKYLOSING SPONDYLITIS
     Route: 042
     Dates: start: 201304
  2. DICLOFENAC [Concomitant]
     Dosage: FOR 6 MONTHS
     Route: 065
  3. METHOTREXATE [Concomitant]
     Dosage: 6 PILLS PER DAY
     Route: 065
     Dates: start: 201307

REACTIONS (4)
  - Fall [Not Recovered/Not Resolved]
  - Arthropathy [Not Recovered/Not Resolved]
  - Ankylosing spondylitis [Not Recovered/Not Resolved]
  - Joint injury [Unknown]
